FAERS Safety Report 5356670-7 (Version None)
Quarter: 2007Q2

REPORT INFORMATION
  Report Type: 
  Country: None (occurrence: None)
  Receive Date: 20070611
  Receipt Date: 20070529
  Transmission Date: 20071010
  Serious: Yes (Hospitalization)
  Sender: FDA-Public Use
  Company Number: 233448K07USA

PATIENT
  Age: 62 Year
  Sex: Male
  Weight: 79.3795 kg

DRUGS (11)
  1. REBIF [Suspect]
     Indication: MULTIPLE SCLEROSIS
     Dosage: 44 MCG, 3 IN 1 WEEKS, SUBCUTANEOUS
     Route: 058
     Dates: start: 20040324
  2. PREDNISONE [Concomitant]
  3. ASPIRIN [Concomitant]
  4. HYZAAR [Concomitant]
  5. CARDURA (DOXAZOSIN /00639301/) [Concomitant]
  6. FLOMAX (MORNIFLUMATE) [Concomitant]
  7. OXYCONTIN [Concomitant]
  8. PLAQUENIL [Concomitant]
  9. CYMBALTA [Concomitant]
  10. LYRICA [Concomitant]
  11. OXYGEN (OXYGEN) [Concomitant]

REACTIONS (2)
  - PNEUMONIA [None]
  - SMALL INTESTINAL PERFORATION [None]
